FAERS Safety Report 25743731 (Version 2)
Quarter: 2025Q3

REPORT INFORMATION
  Report Type: Report from Study
  Country: CO (occurrence: CO)
  Receive Date: 20250831
  Receipt Date: 20250903
  Transmission Date: 20251021
  Serious: Yes (Life-Threatening, Hospitalization, Disabling, Other)
  Sender: BRISTOL-MYERS SQUIBB COMPANY
  Company Number: CO-BRISTOL-MYERS SQUIBB COMPANY-2025-098886

PATIENT
  Age: 62 Year
  Sex: Female
  Weight: 44 kg

DRUGS (2)
  1. ONUREG [Suspect]
     Active Substance: AZACITIDINE
     Indication: Acute myeloid leukaemia
     Dosage: EVERY 1 DAY, EVERY 24 HRS
     Route: 048
     Dates: start: 20250606
  2. ONUREG [Suspect]
     Active Substance: AZACITIDINE
     Dosage: EVERY DAY
     Route: 048
     Dates: start: 20250706

REACTIONS (19)
  - Immune system disorder [Unknown]
  - Vomiting [Recovering/Resolving]
  - Increased appetite [Recovering/Resolving]
  - Weight increased [Recovering/Resolving]
  - Neoplasm malignant [Recovering/Resolving]
  - Skin lesion [Recovering/Resolving]
  - Full blood count abnormal [Recovering/Resolving]
  - Pyrexia [Not Recovered/Not Resolved]
  - Malaise [Not Recovered/Not Resolved]
  - Oral herpes [Not Recovered/Not Resolved]
  - Insomnia [Not Recovered/Not Resolved]
  - Oropharyngeal plaque [Unknown]
  - Skin infection [Recovering/Resolving]
  - Oral disorder [Recovering/Resolving]
  - Gastrointestinal infection [Not Recovered/Not Resolved]
  - Acute myeloid leukaemia [Not Recovered/Not Resolved]
  - Movement disorder [Unknown]
  - Pancytopenia [Recovering/Resolving]
  - Pleural effusion [Recovering/Resolving]

NARRATIVE: CASE EVENT DATE: 20250101
